FAERS Safety Report 16730064 (Version 1)
Quarter: 2019Q3

REPORT INFORMATION
  Report Type: Spontaneous
  Country: DE (occurrence: DE)
  Receive Date: 20190822
  Receipt Date: 20190822
  Transmission Date: 20191005
  Serious: No
  Sender: FDA-Public Use
  Company Number: DE-PACIRA-201400177

PATIENT
  Sex: Female

DRUGS (1)
  1. DEPOCYT [Suspect]
     Active Substance: CYTARABINE
     Indication: METASTASES TO MENINGES
     Dosage: ADMINISTERED 5 TO 6 TIMES IN THE LAST 2 WEEKS., FREQUENCY : UNK
     Route: 037

REACTIONS (3)
  - Inappropriate schedule of product administration [Unknown]
  - Headache [Unknown]
  - Musculoskeletal stiffness [Unknown]
